FAERS Safety Report 10866654 (Version 1)
Quarter: 2015Q1

REPORT INFORMATION
  Report Type: Spontaneous
  Country: CA (occurrence: None)
  Receive Date: 20150220
  Receipt Date: 20150220
  Transmission Date: 20150721
  Serious: Yes (Hospitalization)
  Sender: FDA-Public Use
  Company Number: 2015FE00459

PATIENT
  Age: 62 Year
  Sex: Female
  Weight: 61 kg

DRUGS (4)
  1. DULCOLAX [Suspect]
     Active Substance: BISACODYL OR DOCUSATE SODIUM
     Route: 048
  2. ACTONEL (RISEDRONATE SODIUM) [Concomitant]
  3. PICO-SALAX [Suspect]
     Active Substance: CITRIC ACID MONOHYDRATE\MAGNESIUM OXIDE\SODIUM PICOSULFATE
     Indication: PRODUCT USED FOR UNKNOWN INDICATION
     Route: 048
  4. CHOLECALCIFEROL (COLECALCIFEROL) [Concomitant]

REACTIONS (6)
  - Dizziness [None]
  - Vomiting [None]
  - Syncope [None]
  - Loss of consciousness [None]
  - Pollakiuria [None]
  - Abdominal pain [None]
